FAERS Safety Report 18328213 (Version 1)
Quarter: 2020Q3

REPORT INFORMATION
  Report Type: Spontaneous
  Country: FR (occurrence: FR)
  Receive Date: 20200930
  Receipt Date: 20200930
  Transmission Date: 20201103
  Serious: Yes (Hospitalization)
  Sender: FDA-Public Use
  Company Number: FR-JNJFOC-20200941293

PATIENT
  Age: 47 Year
  Sex: Female

DRUGS (7)
  1. MEDROL [Suspect]
     Active Substance: METHYLPREDNISOLONE
     Indication: ASTHMA
     Route: 048
     Dates: start: 20061218, end: 20061223
  2. MONOZECLAR [Suspect]
     Active Substance: CLARITHROMYCIN
     Indication: ASTHMA
     Route: 048
     Dates: start: 20061218, end: 20061225
  3. SYMBICORT [Suspect]
     Active Substance: BUDESONIDE\FORMOTEROL FUMARATE DIHYDRATE
     Indication: ASTHMA
     Dosage: 320/9 G PER DOSE, TWO INHALATIONS PER DAY
     Route: 055
  4. PARACETAMOL [Concomitant]
     Active Substance: ACETAMINOPHEN
     Indication: MIGRAINE
     Dosage: LONG?TERM TREATMENT
     Route: 065
  5. SYMBICORT [Suspect]
     Active Substance: BUDESONIDE\FORMOTEROL FUMARATE DIHYDRATE
     Indication: ASTHMA
     Route: 048
     Dates: start: 20061218
  6. TIOTROPIUM BROMURE [Concomitant]
     Indication: ASTHMA
     Dosage: NOT REPORTED
     Route: 065
     Dates: start: 20061218
  7. CETIRIZINE HYDROCHLORIDE. [Suspect]
     Active Substance: CETIRIZINE HYDROCHLORIDE
     Indication: ASTHMA
     Dosage: LONG?TERM TREATMENT
     Route: 048

REACTIONS (2)
  - Peripheral ischaemia [Unknown]
  - Ecchymosis [Unknown]

NARRATIVE: CASE EVENT DATE: 20061225
